FAERS Safety Report 23666543 (Version 1)
Quarter: 2024Q1

REPORT INFORMATION
  Report Type: Spontaneous
  Country: PL (occurrence: PL)
  Receive Date: 20240324
  Receipt Date: 20240324
  Transmission Date: 20240410
  Serious: Yes (Hospitalization, Other)
  Sender: FDA-Public Use
  Company Number: PL-APIL-2310346US

PATIENT
  Age: 56 Year
  Sex: Male

DRUGS (5)
  1. TIMOLOL [Suspect]
     Active Substance: TIMOLOL
     Indication: Angle closure glaucoma
     Dosage: FORM STRENGTH: 0.5%
     Route: 061
  2. BRIMONIDINE [Suspect]
     Active Substance: BRIMONIDINE TARTRATE
     Indication: Angle closure glaucoma
     Dosage: LEFT EYE
     Route: 061
  3. PILOCARPINE HYDROCHLORIDE [Suspect]
     Active Substance: PILOCARPINE HYDROCHLORIDE
     Indication: Angle closure glaucoma
     Dosage: FORM STRENGTH: 2 %
     Route: 061
  4. ACETAZOLAMIDE [Suspect]
     Active Substance: ACETAZOLAMIDE
     Indication: Angle closure glaucoma
     Route: 048
  5. MANNITOL [Suspect]
     Active Substance: MANNITOL
     Indication: Angle closure glaucoma
     Dosage: FORM STRENGTH: 20%
     Route: 042

REACTIONS (1)
  - Hypotony maculopathy [Unknown]
